FAERS Safety Report 19922931 (Version 1)
Quarter: 2021Q4

REPORT INFORMATION
  Report Type: Report from Study
  Country: US (occurrence: US)
  Receive Date: 20211005
  Receipt Date: 20211005
  Transmission Date: 20220304
  Serious: Yes (Other)
  Sender: FDA-Public Use
  Company Number: US-PFIZER INC-2016598190

PATIENT
  Age: 83 Year
  Sex: Female

DRUGS (4)
  1. IBRANCE [Suspect]
     Active Substance: PALBOCICLIB
     Indication: Breast cancer female
     Dosage: 100 MG, CYCLIC (DAILY FOR 14 DAYS ON THEN 7 DAYS OFF)
     Route: 048
     Dates: start: 20160210
  2. IBRANCE [Suspect]
     Active Substance: PALBOCICLIB
     Dosage: 75 MG, CYCLIC (14 DAYS ON, 7 OFF)
     Route: 048
     Dates: start: 201704
  3. IBRANCE [Suspect]
     Active Substance: PALBOCICLIB
     Dosage: 75 MG, CYCLIC (7 DAYS ON, 7 OFF)
     Route: 048
     Dates: start: 202002
  4. FEMARA [Concomitant]
     Active Substance: LETROZOLE
     Indication: Breast cancer female
     Dosage: 2.5 MG, DAILY
     Dates: start: 20160210

REACTIONS (11)
  - Neuropathy peripheral [Unknown]
  - Hallucinations, mixed [Unknown]
  - Urinary tract infection [Unknown]
  - Thinking abnormal [Unknown]
  - Fatigue [Unknown]
  - White blood cell count decreased [Unknown]
  - Alopecia [Unknown]
  - Nasal dryness [Unknown]
  - Diarrhoea [Unknown]
  - Weight decreased [Recovering/Resolving]
  - Decreased appetite [Unknown]

NARRATIVE: CASE EVENT DATE: 20160224
